FAERS Safety Report 21611040 (Version 1)
Quarter: 2022Q4

REPORT INFORMATION
  Report Type: Spontaneous
  Country: JP (occurrence: JP)
  Receive Date: 20221117
  Receipt Date: 20221117
  Transmission Date: 20230113
  Serious: Yes (Hospitalization)
  Sender: FDA-Public Use
  Company Number: JP-ARBOR PHARMACEUTICALS, LLC-JP-2022ARB002836

PATIENT
  Age: 95 Year
  Sex: Female

DRUGS (1)
  1. GABAPENTIN ENACARBIL [Suspect]
     Active Substance: GABAPENTIN ENACARBIL
     Indication: Product used for unknown indication
     Dosage: UNK UNK, ONCE DAILY, AT BEDTIME
     Route: 048

REACTIONS (4)
  - Decreased appetite [Unknown]
  - Dehydration [Unknown]
  - Off label use [Unknown]
  - Product use issue [Unknown]
